FAERS Safety Report 8018160-2 (Version None)
Quarter: 2012Q1

REPORT INFORMATION
  Report Type: 
  Country: None (occurrence: None)
  Receive Date: 20120103
  Receipt Date: 20111227
  Transmission Date: 20120608
  Serious: Yes (Death, Hospitalization)
  Sender: FDA-Public Use
  Company Number: FR-JNJFOC-20111212777

PATIENT

DRUGS (9)
  1. CLOPIDOGREL [Suspect]
     Indication: PERCUTANEOUS CORONARY INTERVENTION
     Route: 048
  2. STATINS NOS [Concomitant]
     Route: 065
  3. BETA BLOCKERS, NOS [Concomitant]
     Route: 065
  4. CLOPIDOGREL [Suspect]
     Indication: MYOCARDIAL INFARCTION
     Route: 048
  5. ASPIRIN [Suspect]
     Indication: PERCUTANEOUS CORONARY INTERVENTION
     Route: 042
  6. ASPIRIN [Suspect]
     Indication: MYOCARDIAL INFARCTION
     Route: 042
  7. ABCIXIMAB [Suspect]
     Indication: MYOCARDIAL INFARCTION
     Route: 040
  8. ABCIXIMAB [Suspect]
     Indication: PERCUTANEOUS CORONARY INTERVENTION
     Route: 040
  9. ACE INHIBITORS, NOS [Concomitant]
     Route: 065

REACTIONS (1)
  - HAEMORRHAGE INTRACRANIAL [None]
